FAERS Safety Report 9978922 (Version 1)
Quarter: 2014Q1

REPORT INFORMATION
  Report Type: Report from Study
  Country: US (occurrence: US)
  Receive Date: 20140306
  Receipt Date: 20140306
  Transmission Date: 20141002
  Serious: No
  Sender: FDA-Public Use
  Company Number: US-ABBVIE-13P-163-1169027-00

PATIENT
  Age: 47 Year
  Sex: Female
  Weight: 113.5 kg

DRUGS (7)
  1. HUMIRA [Suspect]
     Indication: PSORIATIC ARTHROPATHY
     Route: 058
     Dates: start: 201310
  2. METHOTREXATE [Concomitant]
     Indication: PSORIATIC ARTHROPATHY
     Dates: start: 201310
  3. FOLIC ACID [Concomitant]
     Indication: VITAMIN SUPPLEMENTATION
     Dates: start: 201310
  4. SIMVASTATIN [Concomitant]
     Indication: BLOOD CHOLESTEROL
  5. NADOLOL [Concomitant]
     Indication: BLOOD PRESSURE
  6. LEVOTHYROXINE [Concomitant]
     Indication: THYROID DISORDER
  7. HCTZ [Concomitant]
     Indication: BLOOD PRESSURE

REACTIONS (3)
  - Injection site bruising [Recovering/Resolving]
  - Injection site haemorrhage [Recovered/Resolved]
  - Injection site pain [Recovered/Resolved]
